FAERS Safety Report 4829291-X (Version None)
Quarter: 2005Q4

REPORT INFORMATION
  Report Type: 
  Country: None (occurrence: None)
  Receive Date: 20051116
  Receipt Date: 20051108
  Transmission Date: 20060501
  Serious: Yes (Hospitalization)
  Sender: FDA-Public Use
  Company Number: FR-GLAXOSMITHKLINE-B0400193A

PATIENT
  Age: 76 Year
  Sex: Female

DRUGS (10)
  1. ARIXTRA [Suspect]
     Indication: THROMBOSIS PROPHYLAXIS
     Dosage: 1INJ PER DAY
     Route: 058
     Dates: start: 20050912, end: 20050920
  2. DEROXAT [Concomitant]
  3. ENALAPRIL MALEATE AND HYDROCHLOROTHIAZIDE [Concomitant]
  4. CELECTOL [Concomitant]
  5. TRAMADOL HCL [Concomitant]
  6. STILNOX [Concomitant]
  7. TARDYFERON [Concomitant]
  8. EUPRESSYL [Concomitant]
  9. SPECIAFOLDINE [Concomitant]
  10. EFFERALGAN CODEINE [Concomitant]

REACTIONS (2)
  - HAEMATOMA [None]
  - SKIN NECROSIS [None]
